FAERS Safety Report 5595654-0 (Version None)
Quarter: 2007Q4

REPORT INFORMATION
  Report Type: 
  Country: None (occurrence: None)
  Receive Date: 20071218
  Receipt Date: 20070815
  Transmission Date: 20080405
  Serious: Yes (Hospitalization, Other)
  Sender: FDA-Public Use
  Company Number: 2007067637

PATIENT
  Age: 56 Year
  Sex: Male
  Weight: 108.9 kg

DRUGS (1)
  1. BEXTRA [Suspect]
     Indication: BACK PAIN
     Dosage: 20 MG (20 MG, 1 IN 1 D)
     Dates: start: 20041031

REACTIONS (2)
  - MYOCARDIAL INFARCTION [None]
  - SKIN LESION [None]
